FAERS Safety Report 11074120 (Version 1)
Quarter: 2015Q2

REPORT INFORMATION
  Report Type: Spontaneous
  Country: US (occurrence: None)
  Receive Date: 20150428
  Receipt Date: 20150428
  Transmission Date: 20150821
  Serious: Yes (Life-Threatening)
  Sender: FDA-Public Use
  Company Number: None

PATIENT
  Age: 80 Year
  Sex: Male
  Weight: 931.8 kg

DRUGS (2)
  1. KETOCONAZOL [Suspect]
     Active Substance: KETOCONAZOLE
     Indication: ATRIAL FIBRILLATION
     Dates: start: 20140103
  2. XARELTO [Suspect]
     Active Substance: RIVAROXABAN
     Indication: ATRIAL FIBRILLATION
     Dates: start: 20140103

REACTIONS (2)
  - Syncope [None]
  - Epistaxis [None]

NARRATIVE: CASE EVENT DATE: 20150408
